FAERS Safety Report 6355426-6 (Version None)
Quarter: 2009Q3

REPORT INFORMATION
  Report Type: 
  Country: None (occurrence: None)
  Receive Date: 20090914
  Receipt Date: 20090904
  Transmission Date: 20100115
  Serious: Yes (Other)
  Sender: FDA-Public Use
  Company Number: PHEH2009US10502

PATIENT
  Sex: Female

DRUGS (4)
  1. RECLAST [Suspect]
     Dosage: UNK
     Dates: start: 20090702, end: 20090702
  2. CALCIUM [Concomitant]
     Dosage: UNK, UNK
     Route: 065
  3. VITAMINS [Concomitant]
     Dosage: UNK, UNK
     Route: 065
  4. HORMONES [Concomitant]
     Dosage: UNK, UNK
     Route: 065

REACTIONS (3)
  - ARTHRALGIA [None]
  - GASTRIC BYPASS [None]
  - MYALGIA [None]
